FAERS Safety Report 8111089-0 (Version None)
Quarter: 2012Q1

REPORT INFORMATION
  Report Type: 
  Country: None (occurrence: None)
  Receive Date: 20120203
  Receipt Date: 20110408
  Transmission Date: 20120608
  Serious: No
  Sender: FDA-Public Use
  Company Number: US-GLAXOSMITHKLINE-A0922102A

PATIENT
  Age: 37 Year
  Sex: Female

DRUGS (3)
  1. ZOLOFT [Concomitant]
  2. KLONOPIN [Concomitant]
  3. LAMICTAL [Suspect]
     Indication: PANIC DISORDER
     Dosage: 75MG PER DAY
     Route: 048
     Dates: start: 20110101

REACTIONS (4)
  - PANIC ATTACK [None]
  - WHITE BLOOD CELL COUNT DECREASED [None]
  - DRUG INEFFECTIVE [None]
  - ANXIETY [None]
